FAERS Safety Report 7205070-3 (Version None)
Quarter: 2010Q4

REPORT INFORMATION
  Report Type: 
  Country: None (occurrence: None)
  Receive Date: 20101230
  Receipt Date: 20101216
  Transmission Date: 20110411
  Serious: Yes (Hospitalization, Other)
  Sender: FDA-Public Use
  Company Number: US-CELGENEUS-163-21880-10122231

PATIENT
  Sex: Female

DRUGS (2)
  1. REVLIMID [Suspect]
     Indication: MULTIPLE MYELOMA
     Route: 048
     Dates: start: 20100512, end: 20101213
  2. WARFARIN [Concomitant]
     Route: 065

REACTIONS (3)
  - FLUID RETENTION [None]
  - NAUSEA [None]
  - PNEUMONIA [None]
